FAERS Safety Report 5090664-4 (Version None)
Quarter: 2006Q3

REPORT INFORMATION
  Report Type: 
  Country: None (occurrence: None)
  Receive Date: 20060823
  Receipt Date: 20060817
  Transmission Date: 20061208
  Serious: Yes (Hospitalization)
  Sender: FDA-Public Use
  Company Number: 2006-08-1151

PATIENT
  Age: 74 Year
  Sex: Male

DRUGS (1)
  1. TEMODL (TEMOZOLOMIDE)CAPSULES    LIKE TEMODAR [Suspect]
     Indication: BRAIN NEOPLASM
     Dosage: 300 MG QD ORAL
     Route: 048
     Dates: start: 20060809, end: 20060813

REACTIONS (2)
  - ELECTROCARDIOGRAM T WAVE INVERSION [None]
  - MYOCARDIAL ISCHAEMIA [None]
